FAERS Safety Report 8590809-5 (Version None)
Quarter: 2012Q3

REPORT INFORMATION
  Report Type: 
  Country: None (occurrence: None)
  Receive Date: 20120724
  Receipt Date: 20120710
  Transmission Date: 20120928
  Serious: Yes (Death)
  Sender: FDA-Public Use
  Company Number: 1053087-2012-00008

PATIENT
  Age: 51 Year
  Sex: Male
  Weight: 121.1104 kg

DRUGS (1)
  1. SODIUM CITRATE [Suspect]
     Indication: APHERESIS
     Dosage: 1 BAG PER PROCEDURE/IV
     Route: 042
     Dates: start: 20120706

REACTIONS (1)
  - ROAD TRAFFIC ACCIDENT [None]
